FAERS Safety Report 12784779 (Version 1)
Quarter: 2016Q3

REPORT INFORMATION
  Report Type: Report from Study
  Country: CN (occurrence: CN)
  Receive Date: 20160927
  Receipt Date: 20160927
  Transmission Date: 20161109
  Serious: Yes (Hospitalization)
  Sender: FDA-Public Use
  Company Number: CN-ELI_LILLY_AND_COMPANY-CN201609005133

PATIENT
  Age: 90 Year
  Sex: Female

DRUGS (2)
  1. CALCIUM [Suspect]
     Active Substance: CALCIUM
     Indication: PRODUCT USED FOR UNKNOWN INDICATION
     Dosage: UNK, UNKNOWN
     Route: 065
  2. FORSTEO [Suspect]
     Active Substance: TERIPARATIDE
     Indication: OSTEOPOROSIS
     Dosage: 20 UG, QD
     Route: 058
     Dates: start: 20160815

REACTIONS (7)
  - Dizziness [Recovering/Resolving]
  - Pain [Recovering/Resolving]
  - Back pain [Recovering/Resolving]
  - Fatigue [Recovering/Resolving]
  - Regurgitation [Recovering/Resolving]
  - Discomfort [Recovering/Resolving]
  - Hypertension [Recovering/Resolving]

NARRATIVE: CASE EVENT DATE: 20160815
